FAERS Safety Report 7348235-2 (Version None)
Quarter: 2011Q1

REPORT INFORMATION
  Report Type: 
  Country: None (occurrence: None)
  Receive Date: 20110311
  Receipt Date: 20110215
  Transmission Date: 20110831
  Serious: No
  Sender: FDA-Public Use
  Company Number: US-B.I. PHARMACEUTICALS,INC./RIDGEFIELD-2011-BP-05776BP

PATIENT
  Sex: Female

DRUGS (6)
  1. SYMBICORT [Concomitant]
     Indication: CHRONIC OBSTRUCTIVE PULMONARY DISEASE
  2. XANAX [Concomitant]
     Indication: ANXIETY
  3. LOSARTAN POTASSIUM [Concomitant]
     Indication: CARDIAC VALVE DISEASE
  4. ASPIRIN [Concomitant]
     Indication: PROPHYLAXIS
  5. PRILOSEC [Concomitant]
     Indication: ABDOMINAL DISCOMFORT
  6. SPIRIVA [Suspect]
     Indication: CHRONIC OBSTRUCTIVE PULMONARY DISEASE
     Dosage: 18 MCG
     Route: 055
     Dates: start: 20100901

REACTIONS (4)
  - LIMB DISCOMFORT [None]
  - GROIN PAIN [None]
  - MUSCULOSKELETAL PAIN [None]
  - ARTHRALGIA [None]
